FAERS Safety Report 9683952 (Version 3)
Quarter: 2014Q1

REPORT INFORMATION
  Report Type: Spontaneous
  Country: US (occurrence: US)
  Receive Date: 20131112
  Receipt Date: 20140213
  Transmission Date: 20141002
  Serious: No
  Sender: FDA-Public Use
  Company Number: US-009507513-1311USA003022

PATIENT
  Age: 14 Year
  Sex: Female
  Weight: 56.24 kg

DRUGS (1)
  1. NEXPLANON [Suspect]
     Indication: CONTRACEPTION
     Dosage: 1 DF, EVERY THREE YEARS
     Route: 059
     Dates: start: 20131014

REACTIONS (6)
  - Urinary tract infection [Unknown]
  - Unintended pregnancy [Unknown]
  - Breast tenderness [Unknown]
  - Dysuria [Unknown]
  - Device difficult to use [Unknown]
  - Complication of device removal [Unknown]
